FAERS Safety Report 20996706 (Version 1)
Quarter: 2022Q2

REPORT INFORMATION
  Report Type: Spontaneous
  Country: US (occurrence: US)
  Receive Date: 20220623
  Receipt Date: 20220623
  Transmission Date: 20220720
  Serious: No
  Sender: FDA-Public Use
  Company Number: US-BAUSCH-BL-2022-015584

PATIENT
  Sex: Female

DRUGS (1)
  1. HYDROCORTISONE\NEOMYCIN SULFATE\POLYMYXIN B SULFATE [Suspect]
     Active Substance: HYDROCORTISONE\NEOMYCIN SULFATE\POLYMYXIN B SULFATE
     Indication: Ear disorder
     Route: 065

REACTIONS (4)
  - Ear discomfort [Not Recovered/Not Resolved]
  - Ear pain [Not Recovered/Not Resolved]
  - Ear pruritus [Not Recovered/Not Resolved]
  - Dry skin [Not Recovered/Not Resolved]
